FAERS Safety Report 18001077 (Version 1)
Quarter: 2020Q3

REPORT INFORMATION
  Report Type: Spontaneous
  Country: BR (occurrence: BR)
  Receive Date: 20200709
  Receipt Date: 20200709
  Transmission Date: 20201103
  Serious: Yes (Other)
  Sender: FDA-Public Use
  Company Number: BR-ASTRAZENECA-2020SE85651

PATIENT
  Age: 61 Year
  Sex: Female
  Weight: 52.7 kg

DRUGS (4)
  1. DAPAGLIFOZIN [Suspect]
     Active Substance: DAPAGLIFLOZIN
     Indication: TYPE 2 DIABETES MELLITUS
     Route: 048
     Dates: start: 201706
  2. METFORMIN [Concomitant]
     Active Substance: METFORMIN HYDROCHLORIDE
  3. ALOGLIPTIN. [Concomitant]
     Active Substance: ALOGLIPTIN
  4. METFORMIN [Concomitant]
     Active Substance: METFORMIN HYDROCHLORIDE
     Dates: start: 201706

REACTIONS (3)
  - Anaemia [Unknown]
  - Haemangioma of liver [Unknown]
  - Abnormal loss of weight [Recovered/Resolved]
